FAERS Safety Report 20282111 (Version 2)
Quarter: 2022Q1

REPORT INFORMATION
  Report Type: Spontaneous
  Country: DE (occurrence: DE)
  Receive Date: 20220103
  Receipt Date: 20220106
  Transmission Date: 20220423
  Serious: Yes (Hospitalization)
  Sender: FDA-Public Use
  Company Number: DE-ADRED-07337-01

PATIENT
  Age: 83 Year
  Sex: Female

DRUGS (1)
  1. FENTANYL [Suspect]
     Active Substance: FENTANYL
     Indication: Product used for unknown indication
     Dosage: 75 ?G/H, NACH SCHEMA, PFLASTER TRANSDERMAL
     Route: 062
     Dates: start: 20160823

REACTIONS (3)
  - Angina pectoris [Unknown]
  - Extra dose administered [Unknown]
  - Pain [Unknown]

NARRATIVE: CASE EVENT DATE: 20210306
